FAERS Safety Report 23789322 (Version 2)
Quarter: 2024Q2

REPORT INFORMATION
  Report Type: Spontaneous
  Country: FR (occurrence: FR)
  Receive Date: 20240426
  Receipt Date: 20240606
  Transmission Date: 20240715
  Serious: Yes (Other)
  Sender: FDA-Public Use
  Company Number: FR-VERTEX PHARMACEUTICALS-2024-006199

PATIENT
  Age: 4 Year
  Sex: Male
  Weight: 19 kg

DRUGS (4)
  1. ELEXACAFTOR\IVACAFTOR\TEZACAFTOR [Suspect]
     Active Substance: ELEXACAFTOR\IVACAFTOR\TEZACAFTOR
     Indication: Cystic fibrosis
     Dosage: 1 SACHET (75MG IVA/50MG TEZA/100MG ELEXA) DAILY
     Route: 048
     Dates: start: 20240131, end: 20240229
  2. ELEXACAFTOR\IVACAFTOR\TEZACAFTOR [Suspect]
     Active Substance: ELEXACAFTOR\IVACAFTOR\TEZACAFTOR
     Dosage: 1 SACHET (75MG IVA/50MG TEZA/100MG ELEXA) EVERY OTHER DAY
     Route: 048
     Dates: start: 20240301, end: 20240327
  3. KALYDECO [Suspect]
     Active Substance: IVACAFTOR
     Indication: Cystic fibrosis
     Dosage: 1 SACHET DAILY
     Route: 048
     Dates: start: 20240131, end: 20240229
  4. CREON [Concomitant]
     Active Substance: PANCRELIPASE AMYLASE\PANCRELIPASE LIPASE\PANCRELIPASE PROTEASE

REACTIONS (6)
  - Hepatic cytolysis [Recovering/Resolving]
  - Nasal congestion [Recovered/Resolved]
  - Parvovirus B19 infection [Recovered/Resolved]
  - Tonsillar hypertrophy [Recovered/Resolved]
  - Tonsillolith [Recovered/Resolved]
  - Lymphadenopathy [Recovered/Resolved]

NARRATIVE: CASE EVENT DATE: 20240227
